FAERS Safety Report 25907209 (Version 1)
Quarter: 2025Q4

REPORT INFORMATION
  Report Type: Spontaneous
  Country: US (occurrence: None)
  Receive Date: 20251009
  Receipt Date: 20251009
  Transmission Date: 20260117
  Serious: Yes (Hospitalization)
  Sender: FDA-CTU
  Company Number: None

PATIENT
  Sex: Female

DRUGS (1)
  1. GAMMAGARD LIQUID [Suspect]
     Active Substance: HUMAN IMMUNOGLOBULIN G
     Indication: Polymyositis
     Dosage: OTHER STRENGTH : 10GM/100M;?OTHER FREQUENCY : EVERY 3 WEEKS;?
     Route: 042
     Dates: start: 20250722

REACTIONS (2)
  - Pyrexia [None]
  - Pain [None]
